FAERS Safety Report 9165743 (Version 1)
Quarter: 2013Q1

REPORT INFORMATION
  Report Type: Spontaneous
  Country: US (occurrence: None)
  Receive Date: 20130314
  Receipt Date: 20130314
  Transmission Date: 20140127
  Serious: Yes (Other)
  Sender: FDA-Public Use
  Company Number: None

PATIENT
  Sex: Female
  Weight: 46.27 kg

DRUGS (4)
  1. IPRATROPIUM BROMIDE [Suspect]
     Indication: SNEEZING
     Dosage: 0.03% 2 EA 3X DAY, 2 SPRAYS EA. 3XDAY
     Dates: start: 20120218
  2. IPRATROPIUM BROMIDE [Suspect]
     Indication: RHINORRHOEA
     Dosage: 0.03% 2 EA 3X DAY, 2 SPRAYS EA. 3XDAY
     Dates: start: 20120218
  3. IPRATROPIUM BROMIDE [Suspect]
     Indication: UPPER-AIRWAY COUGH SYNDROME
     Dosage: 0.03% 2 EA 3X DAY, 2 SPRAYS EA. 3XDAY
     Dates: start: 20120218
  4. IPRATROPIUM BROMIDE [Suspect]
     Indication: COUGH
     Dosage: 0.03% 2 EA 3X DAY, 2 SPRAYS EA. 3XDAY
     Dates: start: 20120218

REACTIONS (5)
  - Vision blurred [None]
  - Ear discomfort [None]
  - Dyspnoea [None]
  - Laryngitis [None]
  - Drug ineffective [None]
